FAERS Safety Report 4575543-0 (Version None)
Quarter: 2005Q1

REPORT INFORMATION
  Report Type: 
  Country: None (occurrence: None)
  Receive Date: 20050131
  Receipt Date: 20050131
  Transmission Date: 20050727
  Serious: Yes (Other)
  Sender: FDA-Public Use
  Company Number: None

PATIENT
  Sex: Male
  Weight: 124.7392 kg

DRUGS (3)
  1. AVASTIN [Suspect]
     Indication: RECTAL CANCER
     Dosage: 625MG, Q2WKS
     Dates: start: 20040726, end: 20050103
  2. XELODA [Concomitant]
  3. ERBITUX [Concomitant]

REACTIONS (2)
  - MYOPATHY [None]
  - PAIN IN EXTREMITY [None]
